FAERS Safety Report 5642863-8 (Version None)
Quarter: 2008Q1

REPORT INFORMATION
  Report Type: 
  Country: None (occurrence: None)
  Receive Date: 20080131
  Receipt Date: 20071207
  Transmission Date: 20080703
  Serious: No
  Sender: FDA-Public Use
  Company Number: PHEH2007US15602

PATIENT
  Age: 85 Year
  Sex: Female

DRUGS (1)
  1. TEKTURNA [Suspect]
     Dates: start: 20071107, end: 20071202

REACTIONS (1)
  - RASH PRURITIC [None]
